FAERS Safety Report 7999507-X (Version None)
Quarter: 2011Q4

REPORT INFORMATION
  Report Type: 
  Country: None (occurrence: None)
  Receive Date: 20111221
  Receipt Date: 20111216
  Transmission Date: 20120403
  Serious: No
  Sender: FDA-Public Use
  Company Number: US-PFIZER INC-2011306902

PATIENT
  Sex: Female
  Weight: 56.689 kg

DRUGS (1)
  1. PANTOPRAZOLE [Suspect]
     Dosage: UNK, EVERY TWO DAYS
     Dates: start: 20110101, end: 20110101

REACTIONS (2)
  - NAUSEA [None]
  - MALAISE [None]
